FAERS Safety Report 9411103 (Version 1)
Quarter: 2013Q3

REPORT INFORMATION
  Report Type: Spontaneous
  Country: DE (occurrence: DE)
  Receive Date: 20130721
  Receipt Date: 20130721
  Transmission Date: 20140515
  Serious: Yes (Life-Threatening)
  Sender: FDA-Public Use
  Company Number: DE-MYLANLABS-2013S1014962

PATIENT
  Age: 40 Year
  Sex: Male
  Weight: 103 kg

DRUGS (2)
  1. CITALOPRAM [Suspect]
     Indication: DEPRESSION
     Route: 048
     Dates: start: 201304, end: 201306
  2. MIRTAZAPIN [Suspect]
     Indication: DEPRESSION
     Route: 048
     Dates: start: 201304, end: 201306

REACTIONS (1)
  - Rhabdomyolysis [Recovered/Resolved]
